FAERS Safety Report 4852136-9 (Version None)
Quarter: 2005Q4

REPORT INFORMATION
  Report Type: 
  Country: None (occurrence: None)
  Receive Date: 20051213
  Receipt Date: 20051110
  Transmission Date: 20060501
  Serious: Yes (Other)
  Sender: FDA-Public Use
  Company Number: ES-AMGEN-UK157415

PATIENT
  Age: 56 Year
  Sex: Male

DRUGS (9)
  1. NEUPOGEN [Suspect]
     Indication: CHEMOTHERAPY
     Route: 065
     Dates: start: 20050126, end: 20050209
  2. CIPROFLOXACIN [Suspect]
     Route: 042
     Dates: start: 20050131, end: 20050215
  3. FLUDARABINE [Concomitant]
     Route: 065
  4. CYTARABINE [Concomitant]
     Route: 065
  5. IDARUBICIN HCL [Concomitant]
     Route: 065
  6. VANCOMYCIN [Concomitant]
     Route: 042
     Dates: start: 20050126
  7. METHYLPREDNISOLONE [Concomitant]
     Route: 042
     Dates: start: 20050131
  8. FUROSEMIDE [Concomitant]
     Route: 042
     Dates: start: 20050208
  9. SPIRONOLACTONE [Concomitant]
     Route: 048
     Dates: start: 20050208

REACTIONS (5)
  - ASCITES [None]
  - FLUID IMBALANCE [None]
  - HEPATOSPLENOMEGALY [None]
  - OEDEMA PERIPHERAL [None]
  - PLEURAL EFFUSION [None]
